FAERS Safety Report 13738376 (Version 3)
Quarter: 2017Q3

REPORT INFORMATION
  Report Type: Report from Study
  Country: AU (occurrence: AU)
  Receive Date: 20170710
  Receipt Date: 20170929
  Transmission Date: 20171127
  Serious: Yes (Other)
  Sender: FDA-Public Use
  Company Number: AU-REGENERON PHARMACEUTICALS, INC.-2017-18159

PATIENT

DRUGS (1)
  1. EYLEA [Suspect]
     Active Substance: AFLIBERCEPT
     Indication: NEOVASCULAR AGE-RELATED MACULAR DEGENERATION
     Dosage: LEFT EYE EVERY 12 WEEKS/ RT EYE WAS EVERY 4 WEEKS
     Route: 031
     Dates: start: 20160401

REACTIONS (3)
  - Hernia [Unknown]
  - Visual impairment [Not Recovered/Not Resolved]
  - Cataract operation [Unknown]
